FAERS Safety Report 9366588 (Version 1)
Quarter: 2013Q2

REPORT INFORMATION
  Report Type: Spontaneous
  Country: CA (occurrence: CA)
  Receive Date: 20130625
  Receipt Date: 20130625
  Transmission Date: 20140414
  Serious: Yes (Other)
  Sender: FDA-Public Use
  Company Number: CA-COVIDIEN/TYCO HEALTHCARE/MALLINCKRODT-T201303443

PATIENT
  Age: 80 Year
  Sex: Male

DRUGS (4)
  1. EXALGO EXTENDED RELEASE [Suspect]
     Indication: BONE PAIN
     Route: 048
  2. DEXAMETHASONE [Suspect]
     Indication: BONE PAIN
     Dosage: 8 MG, QD
     Route: 048
  3. DEXAMETHASONE [Suspect]
     Dosage: 4 MG, QD
     Route: 048
  4. TRAZODONE [Suspect]
     Indication: INSOMNIA
     Dosage: 25 MG, UNK

REACTIONS (5)
  - Metastases to bone [Unknown]
  - Metastases to muscle [Unknown]
  - Myopathy [Unknown]
  - Pain [Recovering/Resolving]
  - Insomnia [Not Recovered/Not Resolved]
